FAERS Safety Report 7371003-2 (Version None)
Quarter: 2011Q1

REPORT INFORMATION
  Report Type: 
  Country: None (occurrence: None)
  Receive Date: 20110321
  Receipt Date: 20110321
  Transmission Date: 20110831
  Serious: Yes (Other)
  Sender: FDA-Public Use
  Company Number: None

PATIENT
  Sex: Female
  Weight: 68.0396 kg

DRUGS (2)
  1. TRAMADOL ER 200MG [Suspect]
     Indication: CARPAL TUNNEL DECOMPRESSION
     Dosage: 200MG 1X/DAY PO
     Route: 048
     Dates: start: 20101029, end: 20101216
  2. ULTRAM ER [Suspect]
     Indication: CARPAL TUNNEL DECOMPRESSION
     Dosage: 300MG 1X/DAY PO
     Route: 048
     Dates: start: 20101217, end: 20110119

REACTIONS (2)
  - TINNITUS [None]
  - WITHDRAWAL SYNDROME [None]
